FAERS Safety Report 10242778 (Version 1)
Quarter: 2014Q2

REPORT INFORMATION
  Report Type: Spontaneous
  Country: US (occurrence: US)
  Receive Date: 20140617
  Receipt Date: 20140617
  Transmission Date: 20141212
  Serious: Yes (Death, Hospitalization)
  Sender: FDA-Public Use
  Company Number: PHHY2014US070834

PATIENT
  Age: 11 Year
  Sex: Female

DRUGS (6)
  1. CARBOPLATIN [Suspect]
     Indication: ASTROCYTOMA, LOW GRADE
     Dosage: 175 MG/M2, UNK
  2. VINCRISTINE [Concomitant]
     Indication: ASTROCYTOMA, LOW GRADE
     Dosage: 2 MG, UNK
  3. LEVOTHYROXINE [Concomitant]
     Indication: HYPOTHYROIDISM
  4. ONDANSETRON [Concomitant]
     Indication: NAUSEA
  5. OMEPRAZOLE [Concomitant]
     Indication: GASTROOESOPHAGEAL REFLUX DISEASE
  6. TRIMETHOPRIM SULFAMETHOXAZOLE [Concomitant]
     Indication: ANTIFUNGAL PROPHYLAXIS

REACTIONS (20)
  - Haemolytic anaemia [Fatal]
  - Multi-organ failure [Unknown]
  - Renal failure acute [Unknown]
  - Brain oedema [Unknown]
  - Hepatitis [Unknown]
  - Abdominal tenderness [Unknown]
  - Coagulopathy [Unknown]
  - Tachypnoea [Unknown]
  - Mydriasis [Unknown]
  - Pleural effusion [Unknown]
  - Hypoxia [Unknown]
  - Pupil fixed [Unknown]
  - Headache [Unknown]
  - Hypertension [Unknown]
  - Tachycardia [Unknown]
  - Lethargy [Unknown]
  - Chills [Unknown]
  - Diarrhoea [Unknown]
  - Abdominal pain [Unknown]
  - Back pain [Recovered/Resolved]
